FAERS Safety Report 11125556 (Version 5)
Quarter: 2016Q2

REPORT INFORMATION
  Report Type: Spontaneous
  Country: US (occurrence: US)
  Receive Date: 20150520
  Receipt Date: 20160429
  Transmission Date: 20160815
  Serious: No
  Sender: FDA-Public Use
  Company Number: US-PFIZER INC-2015169633

PATIENT
  Age: 83 Year
  Sex: Female
  Weight: 52 kg

DRUGS (2)
  1. IBRANCE [Suspect]
     Active Substance: PALBOCICLIB
     Indication: BREAST CANCER METASTATIC
     Dosage: 75 MG, CYCLIC (1-21 Q28 DAYS)
     Route: 048
     Dates: start: 20150430
  2. IBRANCE [Suspect]
     Active Substance: PALBOCICLIB
     Dosage: 75 MG, CYCLIC (1-21 Q28 DAYS)
     Route: 048
     Dates: end: 20160305

REACTIONS (7)
  - White blood cell count decreased [Unknown]
  - Nausea [Not Recovered/Not Resolved]
  - Disease progression [Unknown]
  - Pyrexia [Not Recovered/Not Resolved]
  - Breast cancer metastatic [Unknown]
  - Laboratory test abnormal [Not Recovered/Not Resolved]
  - Fatigue [Not Recovered/Not Resolved]

NARRATIVE: CASE EVENT DATE: 2015
